FAERS Safety Report 8226983-X (Version None)
Quarter: 2012Q1

REPORT INFORMATION
  Report Type: 
  Country: None (occurrence: None)
  Receive Date: 20120322
  Receipt Date: 20120320
  Transmission Date: 20120608
  Serious: Yes (Other)
  Sender: FDA-Public Use
  Company Number: US-BAYER-2012-016201

PATIENT
  Age: 52 Year
  Sex: Female

DRUGS (3)
  1. BETASERON [Suspect]
     Indication: RELAPSING-REMITTING MULTIPLE SCLEROSIS
     Dosage: UNK
     Route: 058
     Dates: start: 20111114
  2. BETASERON [Suspect]
     Dosage: 0.5 ML, QOD
     Route: 058
  3. BETASERON [Suspect]
     Dosage: 0.25 ML, QOD
     Route: 058

REACTIONS (1)
  - BLINDNESS [None]
